FAERS Safety Report 4876976-5 (Version None)
Quarter: 2005Q4

REPORT INFORMATION
  Report Type: 
  Country: None (occurrence: None)
  Receive Date: 20051206
  Receipt Date: 20050914
  Transmission Date: 20060501
  Serious: No
  Sender: FDA-Public Use
  Company Number: USA0509108475

PATIENT
  Age: 53 Year
  Sex: Female

DRUGS (6)
  1. CYMBALTA [Suspect]
     Indication: DEPRESSION
     Dosage: 30 MG DAY
     Dates: start: 20050901
  2. CALAN [Concomitant]
  3. RELPAX (ELETRIPTAN HYDROBROMIDE) [Concomitant]
  4. TYLENOL W/ CODEINE NO. 4 [Concomitant]
  5. INDERAL [Concomitant]
  6. ESTROGENS CONJUGATED W/MEDROXYPROGEST ACETATE [Concomitant]

REACTIONS (1)
  - EYE IRRITATION [None]
